FAERS Safety Report 23859700 (Version 2)
Quarter: 2024Q2

REPORT INFORMATION
  Report Type: Spontaneous
  Country: DE (occurrence: None)
  Receive Date: 20240515
  Receipt Date: 20240617
  Transmission Date: 20240716
  Serious: Yes (Death, Other)
  Sender: FDA-Public Use
  Company Number: 2024A113379

PATIENT
  Sex: Female
  Weight: 0.3 kg

DRUGS (5)
  1. QUETIAPINE [Suspect]
     Active Substance: QUETIAPINE
     Indication: Major depression
     Route: 064
     Dates: start: 20221222, end: 20230214
  2. ASPIRIN [Concomitant]
     Active Substance: ASPIRIN
     Indication: Prophylaxis
     Dates: start: 20230125, end: 20230214
  3. CYTOTEC [Concomitant]
     Active Substance: MISOPROSTOL
     Indication: Abortion induced
     Dates: start: 20230518, end: 20230518
  4. MIFEPRISTONE [Concomitant]
     Active Substance: MIFEPRISTONE
     Indication: Abortion induced
     Dates: start: 20230518, end: 20230518
  5. PROGESTERONE [Concomitant]
     Active Substance: PROGESTERONE
     Indication: Prophylaxis
     Dosage: (0-0-1)
     Dates: start: 20230208, end: 20230214

REACTIONS (2)
  - Congenital multiplex arthrogryposis [Fatal]
  - Foetal exposure during pregnancy [Fatal]
